FAERS Safety Report 19044062 (Version 1)
Quarter: 2021Q1

REPORT INFORMATION
  Report Type: Spontaneous
  Country: US (occurrence: US)
  Receive Date: 20210323
  Receipt Date: 20210323
  Transmission Date: 20210420
  Serious: Yes (Hospitalization)
  Sender: FDA-Public Use
  Company Number: None

PATIENT
  Age: 65 Year
  Sex: Male
  Weight: 93 kg

DRUGS (1)
  1. HALOPERIDOL (HALOPERIDOL 10MG TAB) [Suspect]
     Active Substance: HALOPERIDOL
     Indication: SCHIZOAFFECTIVE DISORDER
     Route: 048
     Dates: start: 20210217, end: 20210309

REACTIONS (4)
  - Sedation [None]
  - Bradykinesia [None]
  - Behaviour disorder [None]
  - Parkinsonism [None]

NARRATIVE: CASE EVENT DATE: 20210309
